FAERS Safety Report 7534178-8 (Version None)
Quarter: 2011Q2

REPORT INFORMATION
  Report Type: 
  Country: None (occurrence: None)
  Receive Date: 20110608
  Receipt Date: 20061120
  Transmission Date: 20111010
  Serious: Yes (Death)
  Sender: FDA-Public Use
  Company Number: PHMT2006CA02077

PATIENT
  Sex: Female

DRUGS (1)
  1. CLOZAPINE [Suspect]
     Indication: SCHIZOPHRENIA
     Dosage: 37.5 MG, QD
     Route: 048
     Dates: start: 19990809

REACTIONS (2)
  - BLOOD DISORDER [None]
  - NEOPLASM MALIGNANT [None]
